FAERS Safety Report 14699293 (Version 3)
Quarter: 2018Q3

REPORT INFORMATION
  Report Type: Spontaneous
  Country: CZ (occurrence: CZ)
  Receive Date: 20180330
  Receipt Date: 20180726
  Transmission Date: 20181010
  Serious: Yes (Other)
  Sender: FDA-Public Use
  Company Number: CZ-MYLANLABS-2018M1018564

PATIENT
  Age: 65 Year
  Sex: Male
  Weight: 80 kg

DRUGS (20)
  1. PREDNISONE. [Suspect]
     Active Substance: PREDNISONE
     Dosage: 2.5 MG, QD, HIGH DOSE
     Route: 065
  2. PREDNISONE. [Suspect]
     Active Substance: PREDNISONE
     Dosage: 40 MG, QD
     Dates: end: 2016
  3. DIAPREL [Concomitant]
     Active Substance: GLICLAZIDE
     Indication: DIABETES MELLITUS
     Dosage: UNK, QD
  4. PREDNISONE. [Suspect]
     Active Substance: PREDNISONE
     Dosage: HIGH DOSE
     Route: 065
  5. PREDNISONE. [Suspect]
     Active Substance: PREDNISONE
     Dosage: 2.5 UNK, UNK (HIGH DOSE)
     Dates: start: 201706
  6. PREDNISONE. [Suspect]
     Active Substance: PREDNISONE
     Dosage: 20 MG, UNK
     Dates: start: 2016
  7. HUMALOG [Concomitant]
     Active Substance: INSULIN LISPRO
     Indication: DIABETES MELLITUS
     Dosage: DOSE:8 UNIT(S)
     Route: 058
     Dates: start: 201601
  8. TOUJEO [Concomitant]
     Active Substance: INSULIN GLARGINE
     Dosage: DOSE INCREASED
     Route: 058
  9. GLUCOPHAGE [Concomitant]
     Active Substance: METFORMIN HYDROCHLORIDE
     Indication: DIABETES MELLITUS
     Dosage: UNK, BID
  10. PREDNISONE. [Suspect]
     Active Substance: PREDNISONE
     Dosage: 15 UNK, UNK (HIGH DOSE)
  11. HUMALOG [Concomitant]
     Active Substance: INSULIN LISPRO
     Dosage: DOSE INCREASED
     Route: 058
  12. PREDNISONE. [Suspect]
     Active Substance: PREDNISONE
     Dosage: 20 MG, UNK (HIGH DOSE)
     Dates: start: 201702
  13. PREDNISONE. [Suspect]
     Active Substance: PREDNISONE
     Dosage: 80 MG, UNK (1 MG/KG OF BODY WEIGHT/DAY)
     Dates: start: 201512
  14. PREDNISONE. [Suspect]
     Active Substance: PREDNISONE
     Indication: STILL^S DISEASE
     Dosage: 15 MG, UNK, HIGH DOSE
     Route: 065
  15. PREDNISONE. [Suspect]
     Active Substance: PREDNISONE
     Dosage: DOSE REDUCTION
  16. TOUJEO [Concomitant]
     Active Substance: INSULIN GLARGINE
     Dosage: 10 PM DOSE:12 UNIT(S)
     Route: 058
     Dates: start: 201601
  17. JARDIANCE [Concomitant]
     Active Substance: EMPAGLIFLOZIN
     Indication: DIABETES MELLITUS
     Dosage: UNK (1 TABLET)
  18. PREDNISONE. [Suspect]
     Active Substance: PREDNISONE
     Dosage: HIGH DOSE
     Route: 065
  19. PREDNISONE. [Suspect]
     Active Substance: PREDNISONE
     Dosage: 5 MG, UNK (HIGH DOSE)
     Dates: start: 2017, end: 201706
  20. TOUJEO [Concomitant]
     Active Substance: INSULIN GLARGINE
     Indication: DIABETES MELLITUS
     Dosage: DOSE INCREASED
     Route: 058

REACTIONS (22)
  - Arthralgia [Recovering/Resolving]
  - Retroperitoneal lymphadenopathy [Recovering/Resolving]
  - Treatment failure [Unknown]
  - Blood fibrinogen increased [Recovered/Resolved]
  - Drug ineffective [Unknown]
  - Lymphadenopathy mediastinal [Recovering/Resolving]
  - Diabetes mellitus [Recovering/Resolving]
  - Pyrexia [Recovering/Resolving]
  - Rebound effect [Unknown]
  - Asthenia [Recovering/Resolving]
  - Neutrophil count increased [Recovered/Resolved]
  - Haemoglobin decreased [Recovered/Resolved]
  - Lymphadenopathy [Recovering/Resolving]
  - Splenomegaly [Recovering/Resolving]
  - Night sweats [Recovering/Resolving]
  - Still^s disease [Recovering/Resolving]
  - Blood albumin decreased [Recovering/Resolving]
  - Blood immunoglobulin G increased [Recovered/Resolved]
  - Myalgia [Recovering/Resolving]
  - Diabetic metabolic decompensation [Recovering/Resolving]
  - Leukocytosis [Recovered/Resolved]
  - C-reactive protein increased [Recovering/Resolving]

NARRATIVE: CASE EVENT DATE: 201512
